FAERS Safety Report 6832840-3 (Version None)
Quarter: 2010Q3

REPORT INFORMATION
  Report Type: 
  Country: None (occurrence: None)
  Receive Date: 20100712
  Receipt Date: 20070315
  Transmission Date: 20110219
  Serious: No
  Sender: FDA-Public Use
  Company Number: US-PFIZER INC-2007022997

PATIENT
  Sex: Female
  Weight: 55.34 kg

DRUGS (4)
  1. CHANTIX [Suspect]
     Indication: SMOKING CESSATION THERAPY
     Route: 048
     Dates: start: 20070203
  2. ATENOLOL [Concomitant]
     Route: 048
  3. ACETYLSALICYLIC ACID [Concomitant]
     Route: 048
  4. MULTI-VITAMINS [Concomitant]
     Route: 048

REACTIONS (5)
  - ABDOMINAL DISTENSION [None]
  - CONSTIPATION [None]
  - FLATULENCE [None]
  - INSOMNIA [None]
  - WEIGHT INCREASED [None]
